FAERS Safety Report 4389871-5 (Version None)
Quarter: 2004Q2

REPORT INFORMATION
  Report Type: 
  Country: None (occurrence: None)
  Receive Date: 20040630
  Receipt Date: 20040615
  Transmission Date: 20050107
  Serious: Yes (Other)
  Sender: FDA-Public Use
  Company Number: US-JNJFOC-20040505993

PATIENT
  Age: 43 Year
  Sex: Female
  Weight: 120.6568 kg

DRUGS (3)
  1. REMICADE [Suspect]
     Indication: CROHN'S DISEASE
     Dosage: INTRAVENOUS
     Route: 042
  2. PENTASA [Concomitant]
  3. IMURAN [Concomitant]

REACTIONS (1)
  - LUPUS-LIKE SYNDROME [None]
